FAERS Safety Report 14403191 (Version 2)
Quarter: 2018Q2

REPORT INFORMATION
  Report Type: Report from Study
  Country: US (occurrence: US)
  Receive Date: 20180117
  Receipt Date: 20180402
  Transmission Date: 20180711
  Serious: Yes (Hospitalization, Other)
  Sender: FDA-Public Use
  Company Number: US-TESARO, INC.-US-2018TSO00217

PATIENT

DRUGS (8)
  1. PROBIOTICS                         /07325001/ [Concomitant]
     Active Substance: BIFIDOBACTERIUM LONGUM\LACTOBACILLUS ACIDOPHILUS\LACTOBACILLUS RHAMNOSUS
     Indication: PRODUCT USED FOR UNKNOWN INDICATION
  2. ZEJULA [Suspect]
     Active Substance: NIRAPARIB
     Indication: OVARIAN CANCER
     Dosage: 300 MG, QD
     Route: 048
     Dates: start: 20171215, end: 201801
  3. COUMADIN [Concomitant]
     Active Substance: WARFARIN SODIUM
     Indication: PRODUCT USED FOR UNKNOWN INDICATION
  4. CLARITIN [Concomitant]
     Active Substance: LORATADINE
     Indication: PRODUCT USED FOR UNKNOWN INDICATION
  5. METOPROLOL. [Concomitant]
     Active Substance: METOPROLOL
     Indication: PRODUCT USED FOR UNKNOWN INDICATION
  6. VITAMIN D3 [Concomitant]
     Active Substance: CHOLECALCIFEROL
     Indication: PRODUCT USED FOR UNKNOWN INDICATION
  7. SOTALOL. [Concomitant]
     Active Substance: SOTALOL
     Indication: PRODUCT USED FOR UNKNOWN INDICATION
  8. LOSARTAN. [Concomitant]
     Active Substance: LOSARTAN
     Indication: PRODUCT USED FOR UNKNOWN INDICATION

REACTIONS (14)
  - Malaise [Recovering/Resolving]
  - Hallucination [Not Recovered/Not Resolved]
  - Muscular weakness [Recovering/Resolving]
  - Haemorrhage [Unknown]
  - Fall [Recovering/Resolving]
  - Asthenia [Not Recovered/Not Resolved]
  - Asthenia [Recovering/Resolving]
  - Atrial fibrillation [Unknown]
  - Feeling abnormal [Recovering/Resolving]
  - Red blood cell count decreased [Not Recovered/Not Resolved]
  - Urinary tract infection [Not Recovered/Not Resolved]
  - Head injury [Unknown]
  - Platelet count decreased [Not Recovered/Not Resolved]
  - Drug intolerance [Not Recovered/Not Resolved]
